FAERS Safety Report 25566134 (Version 1)
Quarter: 2025Q3

REPORT INFORMATION
  Report Type: Spontaneous
  Country: US (occurrence: None)
  Receive Date: 20250715
  Receipt Date: 20250715
  Transmission Date: 20251020
  Serious: No
  Sender: FDA-CTU
  Company Number: None

PATIENT
  Age: 28 Year
  Sex: Female
  Weight: 38.2 kg

DRUGS (22)
  1. ALYFTREK [Suspect]
     Active Substance: DEUTIVACAFTOR\TEZACAFTOR\VANZACAFTOR
     Indication: Cystic fibrosis
     Dosage: FREQUENCY : DAILY;?
     Route: 048
     Dates: start: 20250507
  2. ALBUTEROL [Suspect]
     Active Substance: ALBUTEROL
  3. FLUTICASONE PROPIONATE [Concomitant]
     Active Substance: FLUTICASONE PROPIONATE
  4. ACETAMINOPHEN [Concomitant]
     Active Substance: ACETAMINOPHEN
  5. ALENDRONATE [Concomitant]
     Active Substance: ALENDRONATE SODIUM
  6. ALPRAZOLAM [Concomitant]
     Active Substance: ALPRAZOLAM
  7. AMLODIPINE [Concomitant]
     Active Substance: AMLODIPINE BESYLATE
  8. ATOVAQUONE [Concomitant]
     Active Substance: ATOVAQUONE
  9. AZITHROMYCIN [Concomitant]
     Active Substance: AZITHROMYCIN
  10. CALCIUM CITRATE\VITAMIN D [Concomitant]
     Active Substance: CALCIUM CITRATE\VITAMIN D
  11. DOCUSATE [Concomitant]
     Active Substance: DOCUSATE
  12. ETONOGESTREL [Concomitant]
     Active Substance: ETONOGESTREL
  13. FAMOTIDINE [Concomitant]
     Active Substance: FAMOTIDINE
  14. FILGRASTIM [Concomitant]
     Active Substance: FILGRASTIM
  15. TOBI PODHALER [Concomitant]
     Active Substance: TOBRAMYCIN
  16. HYDROXYCHLOROQUINE [Concomitant]
     Active Substance: HYDROXYCHLOROQUINE
  17. TACROLIMUS [Concomitant]
     Active Substance: TACROLIMUS
  18. LORATADINE [Suspect]
     Active Substance: LORATADINE
  19. MAGNESIUM OXIDE [Concomitant]
     Active Substance: MAGNESIUM OXIDE
  20. VALACYCLOVIR [Concomitant]
     Active Substance: VALACYCLOVIR HYDROCHLORIDE
  21. RITUXAN [Concomitant]
     Active Substance: RITUXIMAB
  22. PREDNISONE [Concomitant]
     Active Substance: PREDNISONE

REACTIONS (3)
  - Rhinorrhoea [None]
  - Paranasal sinus discomfort [None]
  - Upper-airway cough syndrome [None]

NARRATIVE: CASE EVENT DATE: 20250508
